FAERS Safety Report 10211328 (Version 1)
Quarter: 2014Q2

REPORT INFORMATION
  Report Type: Spontaneous
  Country: FR (occurrence: FR)
  Receive Date: 20140602
  Receipt Date: 20140602
  Transmission Date: 20141212
  Serious: Yes (Hospitalization)
  Sender: FDA-Public Use
  Company Number: FR-GLAXOSMITHKLINE-B0997621A

PATIENT
  Age: 79 Year
  Sex: Female

DRUGS (5)
  1. SERETIDE DISKUS [Suspect]
     Indication: PRODUCT USED FOR UNKNOWN INDICATION
     Route: 055
  2. FLIXONASE [Suspect]
     Indication: PRODUCT USED FOR UNKNOWN INDICATION
     Dosage: 50MCG AS REQUIRED
     Route: 045
  3. XOLAIR [Suspect]
     Indication: ASTHMA
     Dosage: 225MG EVERY TWO WEEKS
     Route: 042
     Dates: start: 20131015, end: 201311
  4. AERIUS [Concomitant]
     Indication: PRODUCT USED FOR UNKNOWN INDICATION
     Dosage: 10MG PER DAY
     Route: 048
  5. VENTOLINE [Concomitant]
     Indication: PRODUCT USED FOR UNKNOWN INDICATION
     Route: 055

REACTIONS (4)
  - Diffuse large B-cell lymphoma [Not Recovered/Not Resolved]
  - Lymphoedema [Unknown]
  - Stasis dermatitis [Unknown]
  - Lymph node pain [Unknown]
